FAERS Safety Report 5726428-5 (Version None)
Quarter: 2008Q2

REPORT INFORMATION
  Report Type: 
  Country: None (occurrence: None)
  Receive Date: 20080502
  Receipt Date: 20080421
  Transmission Date: 20081010
  Serious: Yes (Other)
  Sender: FDA-Public Use
  Company Number: B0361704A

PATIENT
  Age: 50 Year
  Sex: Male

DRUGS (8)
  1. PAROXETINE HCL [Suspect]
     Indication: DEPRESSION
     Route: 065
     Dates: start: 20010924
  2. AMITRIPTLINE HCL [Concomitant]
     Dates: start: 20031008
  3. MOLIPAXIN [Concomitant]
     Dates: start: 20050323
  4. GAMANIL [Concomitant]
     Dates: start: 20050506
  5. DIHYDROCODEINE [Concomitant]
  6. TRAZODONE HCL [Concomitant]
  7. LOFEPRAMINE [Concomitant]
  8. PROCHLORPERAZINE [Concomitant]

REACTIONS (16)
  - AGITATION [None]
  - ANGER [None]
  - ANXIETY [None]
  - DIARRHOEA [None]
  - DIZZINESS [None]
  - DRUG WITHDRAWAL SYNDROME [None]
  - HYPOAESTHESIA [None]
  - MOOD ALTERED [None]
  - NAUSEA [None]
  - NERVOUSNESS [None]
  - PARAESTHESIA [None]
  - POOR QUALITY SLEEP [None]
  - STOMACH DISCOMFORT [None]
  - SUICIDAL IDEATION [None]
  - TREMOR [None]
  - VOMITING [None]
